FAERS Safety Report 8858743 (Version 1)
Quarter: 2012Q4

REPORT INFORMATION
  Report Type: Spontaneous
  Country: US (occurrence: None)
  Receive Date: 20121019
  Receipt Date: 20121019
  Transmission Date: 20130627
  Serious: Yes (Other)
  Sender: FDA-Public Use
  Company Number: LMI-2012-00326

PATIENT
  Age: 55 Year
  Sex: Female
  Weight: 103.42 kg

DRUGS (11)
  1. DEFINITY [Suspect]
     Indication: TRANSTHORACIC ECHOCARDIOGRAM
     Dosage: 1 vial Definity diluted with 8 mL Normal Saline  (1 in 1 D),Intravenous bolus
     Route: 040
     Dates: start: 20121002, end: 20121002
  2. ASPIRIN [Concomitant]
  3. BACLOFEN (BACLOFEN) [Concomitant]
  4. DIOVAN (VALSARTAN) [Concomitant]
  5. LIPITOR (ATORVASTATIN CALCIUM) [Concomitant]
  6. GLIPIZIDE (GLIPIZIDE) [Concomitant]
  7. LOPRESSOR (METOPROLOL TARTRATE) [Concomitant]
  8. METFORMIN (METFORMIN) [Concomitant]
  9. PLAVIX (CLOPIDOGREL BISULFATE) [Concomitant]
  10. PRILOSEC (OMEPRAZOLE) [Concomitant]
  11. WELLBUTRIN (BUPROPION HYDROCHLORIDE) [Concomitant]

REACTIONS (2)
  - Hypertensive crisis [None]
  - Back pain [None]
